FAERS Safety Report 24708797 (Version 3)
Quarter: 2024Q4

REPORT INFORMATION
  Report Type: Report from Study
  Country: CA (occurrence: CA)
  Receive Date: 20241207
  Receipt Date: 20241227
  Transmission Date: 20250115
  Serious: Yes (Hospitalization, Other)
  Sender: JOHNSON AND JOHNSON
  Company Number: CA-JNJFOC-20241044125

PATIENT
  Age: 41 Year
  Sex: Female
  Weight: 141 kg

DRUGS (9)
  1. REMICADE [Suspect]
     Active Substance: INFLIXIMAB
     Indication: Psoriatic arthropathy
     Dosage: EXPIRY: 31-DEC-2026
     Route: 041
     Dates: start: 20080609
  2. REMICADE [Suspect]
     Active Substance: INFLIXIMAB
     Route: 041
     Dates: start: 20080609
  3. REMICADE [Suspect]
     Active Substance: INFLIXIMAB
     Route: 041
  4. CORTISONE [Suspect]
     Active Substance: CORTISONE
     Indication: Product used for unknown indication
     Route: 065
  5. AMITRIPTYLINE [Concomitant]
     Active Substance: AMITRIPTYLINE
     Indication: Product used for unknown indication
  6. PANTOPRAZOLE SODIUM [Concomitant]
     Active Substance: PANTOPRAZOLE SODIUM
     Indication: Product used for unknown indication
  7. SYNTHROID [Concomitant]
     Active Substance: LEVOTHYROXINE SODIUM
     Indication: Product used for unknown indication
  8. CORTEF [Concomitant]
     Active Substance: HYDROCORTISONE
     Indication: Product used for unknown indication
  9. CETIRIZINE [Concomitant]
     Active Substance: CETIRIZINE HYDROCHLORIDE
     Indication: Product used for unknown indication

REACTIONS (12)
  - Urinary tract infection [Recovered/Resolved]
  - Bacterial pyelonephritis [Unknown]
  - Gastric cancer [Unknown]
  - Diabetes mellitus [Unknown]
  - Conjunctivitis [Recovered/Resolved]
  - Vaginal infection [Unknown]
  - COVID-19 [Recovering/Resolving]
  - Infusion site pain [Not Recovered/Not Resolved]
  - Helicobacter infection [Unknown]
  - Arthralgia [Not Recovered/Not Resolved]
  - Underdose [Unknown]
  - Drug intolerance [Not Recovered/Not Resolved]

NARRATIVE: CASE EVENT DATE: 20241201
